FAERS Safety Report 21278256 (Version 1)
Quarter: 2022Q3

REPORT INFORMATION
  Report Type: Report from Study
  Country: CO (occurrence: CO)
  Receive Date: 20220831
  Receipt Date: 20220831
  Transmission Date: 20221027
  Serious: Yes (Hospitalization, Disabling)
  Sender: FDA-Public Use
  Company Number: CO-ABBVIE-22K-036-4520648-00

PATIENT
  Age: 78 Year
  Sex: Male
  Weight: 57 kg

DRUGS (1)
  1. SKYRIZI [Suspect]
     Active Substance: RISANKIZUMAB-RZAA
     Indication: Psoriasis
     Route: 058
     Dates: start: 20210727

REACTIONS (7)
  - Chest pain [Recovering/Resolving]
  - Pulmonary fibrosis [Recovering/Resolving]
  - Parkinson^s disease [Recovering/Resolving]
  - Walking disability [Not Recovered/Not Resolved]
  - Muscle strength abnormal [Not Recovered/Not Resolved]
  - Muscular weakness [Unknown]
  - Anxiety [Unknown]

NARRATIVE: CASE EVENT DATE: 20220801
